FAERS Safety Report 9836569 (Version 2)
Quarter: 2014Q1

REPORT INFORMATION
  Report Type: Report from Study
  Country: US (occurrence: US)
  Receive Date: 20140123
  Receipt Date: 20140123
  Transmission Date: 20141002
  Serious: Yes (Other)
  Sender: FDA-Public Use
  Company Number: US-ROCHE-1331178

PATIENT
  Sex: Female

DRUGS (2)
  1. LUCENTIS [Suspect]
     Indication: AGE-RELATED MACULAR DEGENERATION
     Dosage: LEFT EYE
     Route: 065
     Dates: start: 20130809
  2. LUCENTIS [Suspect]
     Dosage: LEFT EYE
     Route: 065
     Dates: start: 20130903

REACTIONS (7)
  - Terminal state [Unknown]
  - Injection site pain [Unknown]
  - Pain [Unknown]
  - Vomiting [Unknown]
  - Abdominal pain upper [Unknown]
  - Eye pain [Unknown]
  - Hypopnoea [Unknown]
